FAERS Safety Report 7388983-1 (Version None)
Quarter: 2011Q1

REPORT INFORMATION
  Report Type: 
  Country: None (occurrence: None)
  Receive Date: 20110329
  Receipt Date: 20110329
  Transmission Date: 20110831
  Serious: No
  Sender: FDA-Public Use
  Company Number: None

PATIENT
  Sex: Male

DRUGS (2)
  1. NCIG -ON BATTERY- [Suspect]
  2. E-CIGARETTE  NJOY [Suspect]
     Dates: start: 20090901, end: 20110301

REACTIONS (9)
  - DEVICE COMPONENT ISSUE [None]
  - PAIN [None]
  - DEVICE PHYSICAL PROPERTY ISSUE [None]
  - RASH [None]
  - CONSTIPATION [None]
  - THROAT IRRITATION [None]
  - DEVICE DEPOSIT ISSUE [None]
  - LUNG DISORDER [None]
  - INCORRECT ROUTE OF DRUG ADMINISTRATION [None]
